FAERS Safety Report 18499822 (Version 1)
Quarter: 2020Q4

REPORT INFORMATION
  Report Type: Report from Study
  Country: TR (occurrence: TR)
  Receive Date: 20201113
  Receipt Date: 20201113
  Transmission Date: 20210114
  Serious: Yes (Hospitalization)
  Sender: FDA-Public Use
  Company Number: TR-SAKK-2019SA003720AA

PATIENT

DRUGS (21)
  1. URIKOLIZ [Concomitant]
     Active Substance: ALLOPURINOL
     Indication: PROPHYLAXIS
     Dosage: UNK
     Route: 048
     Dates: start: 20181217, end: 20190213
  2. CORASPIN [Concomitant]
     Active Substance: ASPIRIN
     Indication: PROPHYLAXIS
     Dosage: UNK
     Route: 048
     Dates: start: 20181217, end: 20190416
  3. PAROL [Concomitant]
     Active Substance: ACETAMINOPHEN
     Dosage: 1000 MG, 1X
     Route: 048
     Dates: start: 20181231, end: 20181231
  4. ULCURAN [Concomitant]
     Active Substance: RANITIDINE HYDROCHLORIDE
     Indication: PROPHYLAXIS
     Dosage: 50 MG, 1X
     Route: 042
     Dates: start: 20181224, end: 20181224
  5. ULCURAN [Concomitant]
     Active Substance: RANITIDINE HYDROCHLORIDE
     Dosage: 50 MG, 1X
     Route: 042
     Dates: start: 20181231, end: 20181231
  6. BRINZOLAMIDE;TIMOLOL [Concomitant]
     Active Substance: BRINZOLAMIDE\TIMOLOL
     Indication: PROPHYLAXIS
     Dosage: UNK
     Route: 047
     Dates: start: 2002
  7. ISATUXIMAB [Suspect]
     Active Substance: ISATUXIMAB
     Dosage: 10 MG/KG, QW
     Route: 042
     Dates: start: 20181217, end: 20181217
  8. LENALIDOMIDE [Suspect]
     Active Substance: LENALIDOMIDE
     Dosage: 25 MG, QD
     Route: 048
     Dates: start: 20181217, end: 20181217
  9. PANTOPRAZOL [Concomitant]
     Active Substance: PANTOPRAZOLE SODIUM
     Dosage: UNK UNK, UNK
     Route: 048
     Dates: start: 20181218
  10. BACTRIM [Concomitant]
     Active Substance: SULFAMETHOXAZOLE\TRIMETHOPRIM
     Indication: PROPHYLAXIS
     Dosage: UNK
     Route: 048
     Dates: start: 20181217
  11. ACLOVIR [Concomitant]
     Indication: PROPHYLAXIS
     Dosage: UNK
     Route: 048
     Dates: start: 20181217
  12. DEXAMETHASONE. [Suspect]
     Active Substance: DEXAMETHASONE
     Indication: PLASMA CELL MYELOMA
     Dosage: 20 MG, QW
     Route: 042
     Dates: start: 20181231, end: 20181231
  13. BRIMONIDINE TARTRATE. [Concomitant]
     Active Substance: BRIMONIDINE TARTRATE
     Indication: PROPHYLAXIS
     Dosage: UNK
     Route: 047
     Dates: start: 2002
  14. BORTEZOMIB. [Suspect]
     Active Substance: BORTEZOMIB
     Dosage: 1.3 MG/M2;OTHER
     Route: 058
     Dates: start: 20181217, end: 20181217
  15. ISATUXIMAB [Suspect]
     Active Substance: ISATUXIMAB
     Indication: PLASMA CELL MYELOMA
     Dosage: 10 MG/KG, QW, ACTUAL DOSE ADMINISTERED PRIOR TO ANY INTERRUPTION 775 MG
     Route: 042
     Dates: start: 20181231, end: 20181231
  16. BORTEZOMIB. [Suspect]
     Active Substance: BORTEZOMIB
     Indication: PLASMA CELL MYELOMA
     Dosage: 1.3 MG/M2, OTHER
     Route: 058
     Dates: start: 20181227
  17. AVIL [PHENIRAMINE MALEATE] [Concomitant]
     Indication: PROPHYLAXIS
     Dosage: 45.5 MG, 1X
     Route: 042
     Dates: start: 20181224, end: 20181224
  18. DEXAMETHASONE. [Suspect]
     Active Substance: DEXAMETHASONE
     Dosage: UNK
     Route: 065
     Dates: start: 20181217, end: 20181217
  19. PAROL [Concomitant]
     Active Substance: ACETAMINOPHEN
     Indication: PROPHYLAXIS
     Dosage: 1000 MG, 1X
     Route: 048
     Dates: start: 20181224, end: 20181224
  20. AVIL [PHENIRAMINE MALEATE] [Concomitant]
     Dosage: 45.5 MG, 1X
     Route: 042
     Dates: start: 20181231, end: 20181231
  21. LENALIDOMIDE [Suspect]
     Active Substance: LENALIDOMIDE
     Indication: PLASMA CELL MYELOMA
     Dosage: 25 MG, QD
     Route: 048
     Dates: start: 20181224, end: 20181230

REACTIONS (1)
  - Arthritis infective [Recovered/Resolved]

NARRATIVE: CASE EVENT DATE: 20190103
